FAERS Safety Report 5095788-3 (Version None)
Quarter: 2006Q3

REPORT INFORMATION
  Report Type: 
  Country: None (occurrence: None)
  Receive Date: 20060905
  Receipt Date: 20050909
  Transmission Date: 20061208
  Serious: Yes (Hospitalization)
  Sender: FDA-Public Use
  Company Number: PHHO2005US14386

PATIENT
  Age: 29 Year
  Sex: Female
  Weight: 61.2 kg

DRUGS (5)
  1. ICL670A [Suspect]
     Indication: BLOOD IRON INCREASED
     Dosage: 1250 MG, QD
     Route: 048
     Dates: start: 20051216, end: 20060523
  2. DESFERAL T21423+AMP [Suspect]
     Indication: BLOOD IRON INCREASED
     Dosage: NO TREATMENT
     Dates: start: 20051216
  3. DESFERAL T21423+AMP [Suspect]
     Dosage: 2200 MG, QD
     Route: 058
     Dates: start: 20050902, end: 20050907
  4. DESFERAL T21423+AMP [Suspect]
     Dosage: NO TREATMENT
  5. DESFERAL T21423+AMP [Suspect]
     Dosage: 2200 MG DAILY
     Route: 058
     Dates: end: 20051022

REACTIONS (17)
  - ARTHRALGIA [None]
  - BACK PAIN [None]
  - CELLULITIS [None]
  - CONCOMITANT DISEASE PROGRESSION [None]
  - CONSTIPATION [None]
  - DIARRHOEA [None]
  - INJECTION SITE ERYTHEMA [None]
  - INJECTION SITE PAIN [None]
  - INJECTION SITE WARMTH [None]
  - MENTAL STATUS CHANGES [None]
  - MUSCULOSKELETAL PAIN [None]
  - OXYGEN SATURATION DECREASED [None]
  - PAIN [None]
  - PNEUMONIA [None]
  - PNEUMONIA ASPIRATION [None]
  - PYREXIA [None]
  - SICKLE CELL ANAEMIA WITH CRISIS [None]
